FAERS Safety Report 5399321-8 (Version None)
Quarter: 2007Q3

REPORT INFORMATION
  Report Type: 
  Country: None (occurrence: None)
  Receive Date: 20070727
  Receipt Date: 20070723
  Transmission Date: 20080115
  Serious: Yes (Hospitalization)
  Sender: FDA-Public Use
  Company Number: ES-AVENTIS-200713591EU

PATIENT
  Age: 56 Year
  Sex: Male

DRUGS (2)
  1. SEGURIL                            /00032601/ [Suspect]
     Route: 048
     Dates: start: 20050101
  2. SPIRONOLACTONE [Suspect]
     Route: 048
     Dates: start: 20060701

REACTIONS (1)
  - RENAL FAILURE ACUTE [None]
